FAERS Safety Report 5000753-8 (Version None)
Quarter: 2006Q2

REPORT INFORMATION
  Report Type: 
  Country: None (occurrence: None)
  Receive Date: 20060512
  Receipt Date: 20051207
  Transmission Date: 20061013
  Serious: Yes (Hospitalization, Disabling, Other)
  Sender: FDA-Public Use
  Company Number: US-MERCK-0512USA01454

PATIENT
  Age: 54 Year
  Sex: Male
  Weight: 93 kg

DRUGS (5)
  1. VIOXX [Suspect]
     Indication: ARTHRALGIA
     Route: 048
     Dates: start: 20020705, end: 20021101
  2. LORTAB [Concomitant]
     Route: 065
  3. NEXIUM [Concomitant]
     Route: 065
  4. SINGULAIR [Concomitant]
     Route: 065
  5. PRAVACHOL [Concomitant]
     Route: 065

REACTIONS (12)
  - ANGINA UNSTABLE [None]
  - ARTERIOSCLEROSIS [None]
  - ARTHRALGIA [None]
  - BLOOD CHOLESTEROL INCREASED [None]
  - BLOOD TRIGLYCERIDES INCREASED [None]
  - CARDIAC DISORDER [None]
  - CORONARY ARTERY DISEASE [None]
  - DYSPNOEA [None]
  - GASTROOESOPHAGEAL REFLUX DISEASE [None]
  - MITRAL VALVE INCOMPETENCE [None]
  - MYOCARDIAL INFARCTION [None]
  - OBESITY [None]
